FAERS Safety Report 10530989 (Version 1)
Quarter: 2014Q4

REPORT INFORMATION
  Report Type: Spontaneous
  Country: US (occurrence: None)
  Receive Date: 20141020
  Receipt Date: 20141020
  Transmission Date: 20150528
  Serious: Yes (Hospitalization)
  Sender: FDA-Public Use
  Company Number: None

PATIENT
  Age: 66 Year
  Sex: Male
  Weight: 85.1 kg

DRUGS (1)
  1. DABIGATRAN [Suspect]
     Active Substance: DABIGATRAN
     Indication: ATRIAL FIBRILLATION
     Route: 048
     Dates: start: 20121012, end: 20131127

REACTIONS (3)
  - Gastrointestinal haemorrhage [None]
  - Hypoperfusion [None]
  - Hepatic function abnormal [None]

NARRATIVE: CASE EVENT DATE: 20131112
